FAERS Safety Report 9026000 (Version 1)
Quarter: 2013Q1

REPORT INFORMATION
  Report Type: Report from Study
  Country: GB (occurrence: GB)
  Receive Date: 20130122
  Receipt Date: 20130122
  Transmission Date: 20140127
  Serious: Yes (Death)
  Sender: FDA-Public Use
  Company Number: GB-AMGEN-GBRCT2012065388

PATIENT
  Age: 61 Year
  Sex: Male
  Weight: 82 kg

DRUGS (4)
  1. ETANERCEPT [Suspect]
     Indication: RHEUMATOID ARTHRITIS
     Dosage: 25 MG, 2X/WEEK
     Dates: start: 20030725
  2. METHOTREXATE [Concomitant]
     Dosage: 20 DF, UNK
  3. MELOXICAM [Concomitant]
     Dosage: UNK
  4. FOLIC ACID [Concomitant]
     Dosage: 5 MG, UNK

REACTIONS (5)
  - Myocardial ischaemia [Fatal]
  - Renal failure chronic [Fatal]
  - Cellulitis [Fatal]
  - Cardiac failure congestive [Fatal]
  - Sepsis [Fatal]
